FAERS Safety Report 16211102 (Version 2)
Quarter: 2019Q4

REPORT INFORMATION
  Report Type: Spontaneous
  Country: FR (occurrence: FR)
  Receive Date: 20190418
  Receipt Date: 20191017
  Transmission Date: 20200122
  Serious: Yes (Hospitalization, Other)
  Sender: FDA-Public Use
  Company Number: FR-AUROBINDO-AUR-APL-2019-020561

PATIENT
  Age: 3 Year
  Sex: Male

DRUGS (6)
  1. VANCOMYCIN [Suspect]
     Active Substance: VANCOMYCIN
     Indication: TYMPANIC MEMBRANE PERFORATION
     Dosage: 60 MILLIGRAM/KILOGRAM, DAILY
     Route: 065
  2. CEFOTAXIME [Suspect]
     Active Substance: CEFOTAXIME SODIUM
     Indication: TYMPANIC MEMBRANE PERFORATION
     Dosage: 300 MILLIGRAM/KILOGRAM, DAILY
     Route: 065
  3. VANCOMYCIN [Suspect]
     Active Substance: VANCOMYCIN
     Indication: OTITIS MEDIA ACUTE
     Dosage: 40 MILLIGRAM/KILOGRAM, DAILY
     Route: 065
  4. AMOXICILLIN. [Suspect]
     Active Substance: AMOXICILLIN
     Indication: TYMPANIC MEMBRANE PERFORATION
  5. CEFOTAXIME [Suspect]
     Active Substance: CEFOTAXIME SODIUM
     Indication: OTITIS MEDIA ACUTE
     Dosage: 200 MILLIGRAM/KILOGRAM, DAILY
     Route: 065
  6. AMOXICILLIN. [Suspect]
     Active Substance: AMOXICILLIN
     Indication: OTITIS MEDIA ACUTE
     Dosage: 80 MILLIGRAM/KILOGRAM, DAILY
     Route: 065

REACTIONS (9)
  - Inflammatory marker increased [Recovered/Resolved]
  - Blood pressure decreased [Unknown]
  - Procalcitonin increased [Unknown]
  - Photophobia [Unknown]
  - Musculoskeletal stiffness [Unknown]
  - Meningism [Recovered/Resolved]
  - Headache [Unknown]
  - Hyperleukocytosis [Unknown]
  - Pyrexia [Recovered/Resolved]
